FAERS Safety Report 21006968 (Version 4)
Quarter: 2022Q3

REPORT INFORMATION
  Report Type: Report from Study
  Country: AU (occurrence: AU)
  Receive Date: 20220625
  Receipt Date: 20220908
  Transmission Date: 20221027
  Serious: Yes (Hospitalization, Other)
  Sender: FDA-Public Use
  Company Number: AU-BRISTOL-MYERS SQUIBB COMPANY-2022-054380

PATIENT
  Age: 77 Year
  Sex: Female

DRUGS (28)
  1. AZACITIDINE [Suspect]
     Active Substance: AZACITIDINE
     Indication: Myelodysplastic syndrome
     Dosage: DAYS 1-5, 8 AND 9 OF EACH 28 DAY CYCLE
     Route: 058
     Dates: start: 20201109, end: 20210216
  2. AZACITIDINE [Suspect]
     Active Substance: AZACITIDINE
     Dosage: DAYS 1-5, 8 AND 9 OF EACH 28 DAY CYCLE
     Route: 058
     Dates: start: 20210329, end: 20220428
  3. AZACITIDINE [Suspect]
     Active Substance: AZACITIDINE
     Dosage: DAYS 1-5, 8 AND 9 OF EACH 28 DAY CYCLE
     Route: 058
     Dates: start: 20220620
  4. VENETOCLAX [Suspect]
     Active Substance: VENETOCLAX
     Indication: Myelodysplastic syndrome
     Dosage: DAYS 1 - 14 OF EACH 28 DAY CYCLE
     Route: 048
     Dates: start: 20201109, end: 20210705
  5. VENETOCLAX [Suspect]
     Active Substance: VENETOCLAX
     Dosage: DAYS 1 - 14 OF EACH 28 DAY CYCLE
     Route: 048
     Dates: start: 20210823, end: 20220502
  6. VENETOCLAX [Suspect]
     Active Substance: VENETOCLAX
     Dosage: DAYS 1 - 14 OF EACH 28 DAY CYCLE
     Route: 048
     Dates: start: 20220620
  7. BACTRIM DS [Concomitant]
     Active Substance: SULFAMETHOXAZOLE\TRIMETHOPRIM
     Indication: Prophylaxis
     Dosage: 160-800 MG, 1 IN 1 D
     Route: 048
     Dates: start: 20201102
  8. METOCLOPRAMIDE [Concomitant]
     Active Substance: METOCLOPRAMIDE
     Indication: Nausea
     Dosage: 1 AS REQUIRED
     Route: 048
     Dates: start: 20201105
  9. AMITRIPTYLINE [Concomitant]
     Active Substance: AMITRIPTYLINE
     Indication: Back pain
     Route: 048
     Dates: start: 20201119
  10. LORAZEPAM [Concomitant]
     Active Substance: LORAZEPAM
     Indication: Nausea
     Dosage: 0.5-1 MG, AS REQUIRED
     Route: 060
     Dates: start: 20201112
  11. LACTULOSE [Concomitant]
     Active Substance: LACTULOSE
     Indication: Constipation
     Dosage: 1 AS REQUIRED
     Route: 048
     Dates: start: 20201123
  12. THYROXINE [Concomitant]
     Active Substance: LEVOTHYROXINE
     Indication: Hyperthyroidism
     Route: 048
     Dates: start: 2011
  13. CYCLIZINE [Concomitant]
     Active Substance: CYCLIZINE
     Indication: Nausea
     Dosage: 1 AS REQUIRED
     Route: 048
     Dates: start: 20201112
  14. OXYBUTYNIN [Concomitant]
     Active Substance: OXYBUTYNIN
     Indication: Hyperhidrosis
     Route: 048
     Dates: start: 2017
  15. FUROSEMIDE [Concomitant]
     Active Substance: FUROSEMIDE
     Indication: Oedema
     Dosage: 1 AS REQUIRED
     Route: 048
     Dates: start: 20201221
  16. ACETAMINOPHEN [Concomitant]
     Active Substance: ACETAMINOPHEN
     Indication: Musculoskeletal chest pain
     Dosage: 1 AS REQUIRED
     Route: 048
     Dates: start: 20210208
  17. VALACYCLOVIR HYDROCHLORIDE [Concomitant]
     Active Substance: VALACYCLOVIR HYDROCHLORIDE
     Indication: Antiviral prophylaxis
     Route: 048
     Dates: start: 20201028
  18. DOCUSATE SODIUM\SENNOSIDES A AND B [Concomitant]
     Active Substance: DOCUSATE SODIUM\SENNOSIDES A AND B
     Indication: Prophylaxis
     Dosage: 1-2 TABS, AS REQUIRED
     Route: 048
     Dates: start: 20201025
  19. MACROVIC [Concomitant]
     Indication: Prophylaxis
     Dosage: 1-2 SACHETS, AS REQUIRED
     Route: 048
     Dates: start: 20201026
  20. TAPENTADOL [Concomitant]
     Active Substance: TAPENTADOL
     Indication: Musculoskeletal chest pain
     Dosage: 1 AS REQUIRED
     Route: 048
     Dates: start: 20210304
  21. ZOPICLONE [Concomitant]
     Active Substance: ZOPICLONE
     Indication: Insomnia
     Dosage: 1 AS REQUIRED)
     Route: 048
     Dates: start: 20210305
  22. BISACODYL [Concomitant]
     Active Substance: BISACODYL
     Indication: Constipation
     Route: 048
     Dates: start: 20210317
  23. METAMUCIL [Concomitant]
     Active Substance: PLANTAGO SEED
     Indication: Constipation
     Dosage: 4 TEASPOON (2 TEASPOON, 2 IN 1 D)
     Route: 048
     Dates: start: 20210317
  24. CELECOXIB [Concomitant]
     Active Substance: CELECOXIB
     Indication: Periarthritis
     Route: 048
     Dates: start: 20210621
  25. TEMAZEPAM [Concomitant]
     Active Substance: TEMAZEPAM
     Indication: Insomnia
     Dosage: 1 AS REQUIRED
     Route: 048
     Dates: start: 20211206
  26. MELATONIN [Concomitant]
     Active Substance: MELATONIN
     Indication: Insomnia
     Route: 048
     Dates: start: 20211206
  27. GABAPENTIN [Concomitant]
     Active Substance: GABAPENTIN
     Indication: Trigeminal neuralgia
     Route: 048
     Dates: start: 20220122
  28. TAPENTADOL HYDROCHLORIDE [Concomitant]
     Active Substance: TAPENTADOL HYDROCHLORIDE
     Indication: Musculoskeletal chest pain
     Dosage: 1 AS REQUIRED
     Route: 048
     Dates: start: 20210304

REACTIONS (2)
  - Respiratory failure [Recovered/Resolved]
  - Sepsis [Recovered/Resolved]

NARRATIVE: CASE EVENT DATE: 20220528
